FAERS Safety Report 9938040 (Version 1)
Quarter: 2014Q1

REPORT INFORMATION
  Report Type: Report from Study
  Country: US (occurrence: US)
  Receive Date: 20140303
  Receipt Date: 20140303
  Transmission Date: 20141002
  Serious: Yes (Death, Hospitalization)
  Sender: FDA-Public Use
  Company Number: US-ROCHE-1357671

PATIENT
  Age: 59 Year
  Sex: Female

DRUGS (3)
  1. ACTIVASE [Suspect]
     Indication: PULMONARY EMBOLISM
     Route: 042
     Dates: start: 20140110
  2. ACTIVASE [Suspect]
     Indication: INFARCTION
  3. LEVAQUIN [Concomitant]

REACTIONS (3)
  - Cardio-respiratory arrest [Fatal]
  - Pneumonia [Unknown]
  - Urinary tract infection [Unknown]
